FAERS Safety Report 5757923-0 (Version None)
Quarter: 2008Q2

REPORT INFORMATION
  Report Type: 
  Country: None (occurrence: None)
  Receive Date: 20080602
  Receipt Date: 20080602
  Transmission Date: 20081010
  Serious: Yes (Life-Threatening)
  Sender: FDA-Public Use
  Company Number: None

PATIENT
  Sex: Female
  Weight: 44.4525 kg

DRUGS (1)
  1. DIGITEK 250MG BERTEK PHARMACY [Suspect]
     Indication: HEART RATE IRREGULAR
     Dosage: 250MG 1X/DAY PO
     Route: 048
     Dates: start: 20020310, end: 20071029

REACTIONS (8)
  - ASTHENIA [None]
  - DIARRHOEA [None]
  - FALL [None]
  - HEART RATE IRREGULAR [None]
  - HIP FRACTURE [None]
  - LETHARGY [None]
  - MENTAL DISORDER [None]
  - WEIGHT DECREASED [None]
